FAERS Safety Report 5100460-7 (Version None)
Quarter: 2006Q3

REPORT INFORMATION
  Report Type: 
  Country: None (occurrence: None)
  Receive Date: 20060731
  Receipt Date: 20060619
  Transmission Date: 20061208
  Serious: No
  Sender: FDA-Public Use
  Company Number: 2006PV015881

PATIENT
  Age: 51 Year
  Sex: Female
  Weight: 68.0396 kg

DRUGS (6)
  1. BYETTA [Suspect]
     Indication: DIABETES MELLITUS NON-INSULIN-DEPENDENT
     Dosage: 5 MCG;BID;SC
     Route: 058
     Dates: start: 20060601
  2. METFORMIN HCL [Concomitant]
  3. DILANTIN [Concomitant]
  4. COREG [Concomitant]
  5. ARIPIPRAZOLE [Concomitant]
  6. WELLBUTRIN [Concomitant]

REACTIONS (3)
  - CONDITION AGGRAVATED [None]
  - DECREASED APPETITE [None]
  - NERVOUSNESS [None]
